FAERS Safety Report 20246467 (Version 2)
Quarter: 2022Q1

REPORT INFORMATION
  Report Type: Spontaneous
  Country: FR (occurrence: FR)
  Receive Date: 20211229
  Receipt Date: 20220111
  Transmission Date: 20220424
  Serious: Yes (Other)
  Sender: FDA-Public Use
  Company Number: None

PATIENT
  Age: 59 Year
  Sex: Female
  Weight: 60 kg

DRUGS (5)
  1. COSENTYX [Suspect]
     Active Substance: SECUKINUMAB
     Indication: Ankylosing spondylitis
     Dosage: UNK (1 INJECTION SOUS CUTANEE/15JOURS)
     Route: 058
     Dates: start: 20210717
  2. COSENTYX [Suspect]
     Active Substance: SECUKINUMAB
     Dosage: 150 MG
     Route: 058
     Dates: start: 20210717
  3. KETAMINE [Suspect]
     Active Substance: KETAMINE
     Indication: Fibromyalgia
     Dosage: UNK (1 PERFUSION/SEMAINE)
     Route: 041
     Dates: start: 20210712, end: 20210816
  4. THALIDOMIDE [Suspect]
     Active Substance: THALIDOMIDE
     Indication: Aphthous ulcer
     Dosage: 50 MG, QD
     Route: 048
     Dates: start: 20210712
  5. THALIDOMIDE [Suspect]
     Active Substance: THALIDOMIDE
     Indication: Off label use
     Dosage: UNK
     Route: 065

REACTIONS (2)
  - Cardiac failure [Recovering/Resolving]
  - Immunisation reaction [Recovered/Resolved]

NARRATIVE: CASE EVENT DATE: 20210825
